FAERS Safety Report 8952599 (Version 1)
Quarter: 2012Q4

REPORT INFORMATION
  Report Type: 
  Country: US (occurrence: US)
  Receive Date: 20121205
  Receipt Date: 20121205
  Transmission Date: 20130627
  Serious: No
  Sender: FDA-Public Use
  Company Number: US-VERTEX PHARMACEUTICALS INC.-2012-025520

PATIENT
  Age: 46 None
  Sex: Male
  Weight: 76 kg

DRUGS (3)
  1. INCIVEK [Suspect]
     Indication: HEPATITIS C
     Dosage: 750 mg, tid
     Route: 048
     Dates: start: 20121109
  2. RIBAPAK [Suspect]
     Dosage: 1 DF, bid
     Route: 048
     Dates: start: 20121109
  3. PEGASYS [Suspect]
     Indication: HEPATITIS C
     Dosage: 180 ?g, qw
     Route: 058
     Dates: start: 20121109

REACTIONS (10)
  - Insomnia [Recovered/Resolved]
  - Anxiety [Not Recovered/Not Resolved]
  - Anger [Not Recovered/Not Resolved]
  - Mood altered [Not Recovered/Not Resolved]
  - Irritability [Not Recovered/Not Resolved]
  - Constipation [Not Recovered/Not Resolved]
  - Diarrhoea [Recovered/Resolved]
  - Haemorrhoids [Not Recovered/Not Resolved]
  - Proctalgia [Not Recovered/Not Resolved]
  - Pruritus [Not Recovered/Not Resolved]
